FAERS Safety Report 7318525-8 (Version None)
Quarter: 2011Q1

REPORT INFORMATION
  Report Type: 
  Country: None (occurrence: None)
  Receive Date: 20110228
  Receipt Date: 20100909
  Transmission Date: 20110831
  Serious: Yes (Hospitalization, Other)
  Sender: FDA-Public Use
  Company Number: US-BAYER-201018529NA

PATIENT
  Sex: Female

DRUGS (4)
  1. YAZ [Suspect]
     Route: 048
  2. YASMIN [Suspect]
     Indication: MENORRHAGIA
     Dosage: UNK UNK, UNK
     Route: 048
     Dates: start: 20070801, end: 20080213
  3. IBUPROFEN [Concomitant]
  4. ADVIL [Concomitant]

REACTIONS (6)
  - PAIN [None]
  - DYSPNOEA [None]
  - CHEST PAIN [None]
  - EMOTIONAL DISTRESS [None]
  - THROMBOSIS [None]
  - PULMONARY EMBOLISM [None]
